FAERS Safety Report 24040396 (Version 1)
Quarter: 2024Q3

REPORT INFORMATION
  Report Type: Spontaneous
  Country: CH (occurrence: CH)
  Receive Date: 20240702
  Receipt Date: 20240702
  Transmission Date: 20241017
  Serious: Yes (Life-Threatening, Hospitalization, Other)
  Sender: JUBILANT
  Company Number: None

PATIENT
  Age: 9 Year
  Sex: Female

DRUGS (2)
  1. LAMOTRIGINE [Suspect]
     Active Substance: LAMOTRIGINE
     Indication: Jeavons syndrome
     Dosage: 0.15 MG/KG, ONCE PER DAY
     Route: 065
  2. VALPROATE [Suspect]
     Active Substance: VALPROIC ACID
     Indication: Jeavons syndrome
     Dosage: 30 MG/KG, ONCE PER DAY
     Route: 065

REACTIONS (14)
  - Drug reaction with eosinophilia and systemic symptoms [Recovering/Resolving]
  - Anaemia [Recovering/Resolving]
  - Hypotension [Recovering/Resolving]
  - Thrombocytopenia [Recovering/Resolving]
  - Leukocytosis [Recovering/Resolving]
  - Hepatomegaly [Recovering/Resolving]
  - Pleural effusion [Recovering/Resolving]
  - Hepatocellular injury [Recovering/Resolving]
  - Neutrophilia [Recovering/Resolving]
  - Renal failure [Recovering/Resolving]
  - Hypoxia [Recovering/Resolving]
  - Confusional state [Recovering/Resolving]
  - Human herpesvirus 7 infection [Recovering/Resolving]
  - Pulmonary oedema [Recovering/Resolving]
